FAERS Safety Report 18576112 (Version 1)
Quarter: 2020Q4

REPORT INFORMATION
  Report Type: Spontaneous
  Country: GB (occurrence: GB)
  Receive Date: 20201203
  Receipt Date: 20201203
  Transmission Date: 20210114
  Serious: Yes (Other)
  Sender: FDA-Public Use
  Company Number: GB-ALLERGAN-2046537US

PATIENT
  Sex: Female

DRUGS (1)
  1. CITALOPRAM HYDROBROMIDE - BP [Suspect]
     Active Substance: CITALOPRAM HYDROBROMIDE
     Indication: PRODUCT USED FOR UNKNOWN INDICATION
     Dosage: 80 MG, QD
     Route: 048

REACTIONS (6)
  - Overdose [Unknown]
  - Heart rate increased [Unknown]
  - Disorientation [Unknown]
  - Product dispensing error [Unknown]
  - Oropharyngeal pain [Unknown]
  - Dyspnoea [Unknown]
